FAERS Safety Report 20292312 (Version 1)
Quarter: 2022Q1

REPORT INFORMATION
  Report Type: Spontaneous
  Country: GB (occurrence: GB)
  Receive Date: 20220104
  Receipt Date: 20220104
  Transmission Date: 20220423
  Serious: Yes (Other)
  Sender: FDA-Public Use
  Company Number: None

PATIENT
  Age: 92 Year
  Sex: Female
  Weight: 61 kg

DRUGS (17)
  1. DOXYCYCLINE [Suspect]
     Active Substance: DOXYCYCLINE
     Dosage: TWO NOW THEN ONE DAILY
     Dates: start: 20211203
  2. AMLODIPINE [Concomitant]
     Active Substance: AMLODIPINE BESYLATE
     Dosage: UNK UNK, 1X/DAY
     Dates: start: 20201012
  3. AMOXICILLIN [Concomitant]
     Active Substance: AMOXICILLIN
     Dosage: UNK UNK, 3X/DAY
     Dates: start: 20211207, end: 20211214
  4. BRINZOLAMIDE [Concomitant]
     Active Substance: BRINZOLAMIDE
     Dosage: 1 DROP, 2X/DAY
     Dates: start: 20200805
  5. BUPRENORPHINE [Concomitant]
     Active Substance: BUPRENORPHINE
     Dosage: UNK, WEEKLY (APPLY)
     Dates: start: 20210914
  6. CLOPIDOGREL [Concomitant]
     Active Substance: CLOPIDOGREL BISULFATE
     Dosage: UNK UNK, 1X/DAY
     Dates: start: 20200805
  7. FRESUBIN JUCY DRINK [Concomitant]
     Dosage: UNK, 2X/DAY (AS NEEDED)
     Dates: start: 20211124
  8. NITROGLYCERIN [Concomitant]
     Active Substance: NITROGLYCERIN
     Dosage: UNK UNK, AS NEEDED (PUFF)
     Dates: start: 20200805
  9. LANSOPRAZOLE [Concomitant]
     Active Substance: LANSOPRAZOLE
     Dosage: UNK UNK, 1X/DAY
     Dates: start: 20200805
  10. LATANOPROST [Concomitant]
     Active Substance: LATANOPROST
     Dosage: 2 DROP, 1X/DAY (EACH NIGHT EACH EYE)
     Dates: start: 20200805
  11. POLYETHYLENE GLYCOLS [Concomitant]
     Active Substance: POLYETHYLENE GLYCOLS
     Dosage: UNK UNK, 1X/DAY
     Dates: start: 20210412
  12. METOCLOPRAMIDE [Concomitant]
     Active Substance: METOCLOPRAMIDE
     Dosage: UNK UNK, 3X/DAY
     Dates: start: 20211203
  13. ACETAMINOPHEN [Concomitant]
     Active Substance: ACETAMINOPHEN
     Dosage: UNK, 4X/DAY (TAKE AS REQUIRED)
     Dates: start: 20210614
  14. PREGABALIN [Concomitant]
     Active Substance: PREGABALIN
     Dosage: UNK, 2X/DAY
     Dates: start: 20211031
  15. RAMIPRIL [Concomitant]
     Active Substance: RAMIPRIL
     Dosage: UNK UNK, 1X/DAY
     Dates: start: 20201110
  16. SENNOSIDES A AND B [Concomitant]
     Active Substance: SENNOSIDES A AND B
     Dosage: UNK (TAKE 1 OR 2 AT NIGHT)
     Dates: start: 20211203
  17. OXYCODONE HYDROCHLORIDE [Concomitant]
     Active Substance: OXYCODONE HYDROCHLORIDE
     Dosage: UNK (1-2MLS AS DIRECTED BY PALLIATIVE CARE)
     Dates: start: 20210923

REACTIONS (2)
  - Hallucination [Unknown]
  - Hyperhidrosis [Recovered/Resolved]

NARRATIVE: CASE EVENT DATE: 20211217
